FAERS Safety Report 8129814-1 (Version None)
Quarter: 2012Q1

REPORT INFORMATION
  Report Type: 
  Country: None (occurrence: None)
  Receive Date: 20120210
  Receipt Date: 20120210
  Transmission Date: 20120608
  Serious: Yes (Hospitalization)
  Sender: FDA-Public Use
  Company Number: None

PATIENT
  Sex: Male
  Weight: 68.038 kg

DRUGS (1)
  1. DIVALPROEX SODIUM [Suspect]
     Indication: CONVULSION PROPHYLAXIS
     Dosage: 1 TABLET
     Route: 048
     Dates: start: 20120131, end: 20120202

REACTIONS (7)
  - LETHARGY [None]
  - MALAISE [None]
  - MOBILITY DECREASED [None]
  - APHASIA [None]
  - IMPAIRED SELF-CARE [None]
  - ABASIA [None]
  - COGNITIVE DISORDER [None]
